FAERS Safety Report 14056905 (Version 1)
Quarter: 2017Q4

REPORT INFORMATION
  Report Type: Spontaneous
  Country: US (occurrence: US)
  Receive Date: 20171006
  Receipt Date: 20171006
  Transmission Date: 20180321
  Serious: No
  Sender: FDA-Public Use
  Company Number: US-BAYER-2017-183917

PATIENT
  Age: 33 Year
  Sex: Female
  Weight: 69.84 kg

DRUGS (5)
  1. ANTIBIOTIC [CHLORAMPHENICOL] [Concomitant]
  2. ALBUTEROL INHALER [Concomitant]
     Active Substance: ALBUTEROL
  3. SINGULAIR [Concomitant]
     Active Substance: MONTELUKAST SODIUM
  4. CLARITIN [Suspect]
     Active Substance: LORATADINE
     Indication: NASOPHARYNGITIS
  5. CLARITIN [Suspect]
     Active Substance: LORATADINE
     Indication: HYPERSENSITIVITY
     Dosage: UNK
     Dates: start: 20170923

REACTIONS (3)
  - Dizziness [Recovered/Resolved]
  - Therapeutic response unexpected [Unknown]
  - Wrong technique in product usage process [Unknown]

NARRATIVE: CASE EVENT DATE: 20170923
